FAERS Safety Report 11047504 (Version 2)
Quarter: 2015Q2

REPORT INFORMATION
  Report Type: Report from Study
  Country: GB (occurrence: GB)
  Receive Date: 20150420
  Receipt Date: 20150421
  Transmission Date: 20150821
  Serious: Yes (Other)
  Sender: FDA-Public Use
  Company Number: PHHO2015GB005891

PATIENT
  Age: 50 Year
  Sex: Female
  Weight: 90 kg

DRUGS (10)
  1. IBUPROFEN. [Concomitant]
     Active Substance: IBUPROFEN
  2. FOLIC ACID. [Concomitant]
     Active Substance: FOLIC ACID
  3. THIAMINE [Concomitant]
     Active Substance: THIAMINE
  4. AMITRIPTYLINE [Concomitant]
     Active Substance: AMITRIPTYLINE
  5. OMEPRAZOLE. [Concomitant]
     Active Substance: OMEPRAZOLE
  6. PARACETAMOL [Concomitant]
     Active Substance: ACETAMINOPHEN
  7. AIN457 [Suspect]
     Active Substance: SECUKINUMAB
     Indication: PUSTULAR PSORIASIS
     Dosage: 150 MG,
     Route: 058
  8. PLACEBO [Suspect]
     Active Substance: UNSPECIFIED INGREDIENT
     Indication: PUSTULAR PSORIASIS
     Dosage: 150 UNK, UNK
     Route: 058
     Dates: start: 20140508
  9. VITAMIN B [Concomitant]
     Active Substance: VITAMIN B
  10. COCODAMOL [Concomitant]
     Active Substance: ACETAMINOPHEN\CODEINE PHOSPHATE

REACTIONS (1)
  - Lower respiratory tract infection [Recovered/Resolved]

NARRATIVE: CASE EVENT DATE: 20150314
